FAERS Safety Report 4370291-4 (Version None)
Quarter: 2004Q2

REPORT INFORMATION
  Report Type: 
  Country: None (occurrence: None)
  Receive Date: 20040603
  Receipt Date: 20040303
  Transmission Date: 20050107
  Serious: No
  Sender: FDA-Public Use
  Company Number: US-BRISTOL-MYERS SQUIBB COMPANY-12523213

PATIENT
  Age: 33 Year
  Sex: Female
  Weight: 104 kg

DRUGS (1)
  1. ABILIFY [Suspect]
     Indication: SCHIZOPHRENIA
     Dosage: PREVIOUSLY ON 15 MG/DAY FROM DEC-2002 TO FEB-2003
     Route: 048
     Dates: start: 20021201

REACTIONS (6)
  - ANHIDROSIS [None]
  - ANXIETY [None]
  - BACK INJURY [None]
  - BODY TEMPERATURE INCREASED [None]
  - DRUG EFFECT DECREASED [None]
  - INSOMNIA [None]
